FAERS Safety Report 18938280 (Version 1)
Quarter: 2021Q1

REPORT INFORMATION
  Report Type: Spontaneous
  Country: FR (occurrence: FR)
  Receive Date: 20210225
  Receipt Date: 20210225
  Transmission Date: 20210420
  Serious: Yes (Other)
  Sender: FDA-Public Use
  Company Number: FR-GLAXOSMITHKLINE-FR2021044522

PATIENT
  Sex: Female

DRUGS (1)
  1. ZEJULA [Suspect]
     Active Substance: NIRAPARIB
     Indication: OVARIAN CANCER
     Dosage: 100 MG

REACTIONS (9)
  - Rectal haemorrhage [Unknown]
  - Thrombocytopenia [Unknown]
  - Erythropoiesis abnormal [Unknown]
  - Leukaemia [Unknown]
  - Bone marrow disorder [Unknown]
  - Granulocytes abnormal [Unknown]
  - Blast cell count increased [Unknown]
  - Megakaryocytes abnormal [Unknown]
  - Myeloblast count increased [Unknown]

NARRATIVE: CASE EVENT DATE: 202002
